FAERS Safety Report 10674600 (Version 1)
Quarter: 2014Q4

REPORT INFORMATION
  Report Type: Spontaneous
  Country: US (occurrence: US)
  Receive Date: 20141224
  Receipt Date: 20141224
  Transmission Date: 20150529
  Serious: Yes (Life-Threatening, Hospitalization, Other)
  Sender: FDA-Public Use
  Company Number: US-ACTAVIS-2014-27040

PATIENT
  Age: 65 Year
  Sex: Female
  Weight: 57 kg

DRUGS (21)
  1. REMIFENTANIL                       /01229902/ [Concomitant]
     Indication: PRODUCT USED FOR UNKNOWN INDICATION
     Dosage: 0.1?G /KG/MIN
     Route: 065
  2. EPHEDRINE [Concomitant]
     Active Substance: EPHEDRINE
     Dosage: 15 MG, TOTAL
     Route: 040
  3. BUPROPION [Concomitant]
     Active Substance: BUPROPION
     Indication: PRODUCT USED FOR UNKNOWN INDICATION
     Dosage: 150 MG, BID
     Route: 065
  4. CARVEDILOL (UNKNOWN) [Suspect]
     Active Substance: CARVEDILOL
     Indication: HYPERTENSION
     Dosage: 25 MG, BID
     Route: 065
  5. FENTANYL. [Concomitant]
     Active Substance: FENTANYL
     Indication: INDUCTION OF ANAESTHESIA
     Dosage: 500 ?G, SINGLE
     Route: 065
  6. ROCURONIUM                         /01245702/ [Concomitant]
     Indication: INDUCTION OF ANAESTHESIA
     Dosage: 50 MG, SINGLE
     Route: 065
  7. CEFTRIAXONE                        /00672202/ [Concomitant]
     Active Substance: CEFTRIAXONE
     Indication: PRODUCT USED FOR UNKNOWN INDICATION
     Dosage: 1000 MG, SINGLE
     Route: 065
  8. HYDROCHLOROTHIAZIDE AND LISINOPRIL [Suspect]
     Active Substance: HYDROCHLOROTHIAZIDE\LISINOPRIL
     Indication: HYPERTENSION
     Dosage: UNK, DAILY, 20/25MG
     Route: 065
  9. PHENYLEPHRINE [Suspect]
     Active Substance: PHENYLEPHRINE\PHENYLEPHRINE HYDROCHLORIDE
     Indication: MEAN ARTERIAL PRESSURE DECREASED
     Dosage: 200 ?G, TOTAL
     Route: 042
  10. EPHEDRINE [Concomitant]
     Active Substance: EPHEDRINE
     Indication: MEAN ARTERIAL PRESSURE DECREASED
     Dosage: 10 MG, TOTAL
     Route: 042
  11. ROCURONIUM                         /01245702/ [Concomitant]
     Dosage: 50 MG, SINGLE
     Route: 065
  12. PROPOFOL EG [Concomitant]
     Dosage: 60 MG, SINGLE
     Route: 065
  13. ISOFLURANE ABBOTT [Concomitant]
     Dosage: UNK
     Route: 065
  14. REMIFENTANIL                       /01229902/ [Concomitant]
     Dosage: UNK, 0.1?G /KG/MIN
     Route: 065
  15. PRAVASTATIN [Concomitant]
     Active Substance: PRAVASTATIN\PRAVASTATIN SODIUM
     Indication: PRODUCT USED FOR UNKNOWN INDICATION
     Dosage: 20 MG, DAILY
     Route: 065
  16. FENTANYL. [Concomitant]
     Active Substance: FENTANYL
     Dosage: 500 ?G, SINGLE
     Route: 065
  17. PROPOFOL EG [Concomitant]
     Indication: INDUCTION OF ANAESTHESIA
     Dosage: 60 MG, SINGLE
     Route: 065
  18. MIDAZOLAM [Concomitant]
     Active Substance: MIDAZOLAM\MIDAZOLAM HYDROCHLORIDE
     Indication: PRODUCT USED FOR UNKNOWN INDICATION
     Dosage: 2 MG, SINGLE
     Route: 042
  19. DEXAMETHASONE                      /00016002/ [Concomitant]
     Indication: PRODUCT USED FOR UNKNOWN INDICATION
     Dosage: 8 MG, SINGLE
     Route: 065
  20. PHENYLEPHRINE [Suspect]
     Active Substance: PHENYLEPHRINE\PHENYLEPHRINE HYDROCHLORIDE
     Dosage: UNK, 0.75?G/KG/MIN
     Route: 041
  21. ISOFLURANE ABBOTT [Concomitant]
     Indication: PRODUCT USED FOR UNKNOWN INDICATION
     Dosage: UNK
     Route: 065

REACTIONS (10)
  - Procedural hypotension [Recovered/Resolved]
  - Atrioventricular block complete [Recovered/Resolved]
  - Cardiac arrest [Recovered/Resolved]
  - Mean arterial pressure decreased [None]
  - Tricuspid valve incompetence [None]
  - Haemoglobin decreased [None]
  - Blood potassium decreased [None]
  - Mitral valve incompetence [None]
  - Blood creatinine decreased [None]
  - Bradycardia [Recovered/Resolved]
